FAERS Safety Report 23055581 (Version 2)
Quarter: 2023Q4

REPORT INFORMATION
  Report Type: Spontaneous
  Country: AM (occurrence: AM)
  Receive Date: 20231011
  Receipt Date: 20231030
  Transmission Date: 20240110
  Serious: Yes (Death, Other)
  Sender: FDA-Public Use
  Company Number: AM-AMGEN-ARMSP2023179069

PATIENT
  Age: 14 Year
  Sex: Female

DRUGS (2)
  1. XGEVA [Suspect]
     Active Substance: DENOSUMAB
     Indication: Bone giant cell tumour
     Dosage: UNK, QMO
     Route: 065
  2. FILGRASTIM [Suspect]
     Active Substance: FILGRASTIM
     Indication: Prophylaxis
     Dosage: UNK
     Route: 065
     Dates: start: 201909

REACTIONS (10)
  - Bone giant cell tumour [Fatal]
  - Pancytopenia [Unknown]
  - Malignant fibrous histiocytoma [Unknown]
  - Pneumocystis jirovecii pneumonia [Unknown]
  - Pneumothorax [Unknown]
  - Dysphagia [Unknown]
  - Diplopia [Unknown]
  - Stomatitis [Unknown]
  - Oesophagitis [Unknown]
  - Headache [Unknown]

NARRATIVE: CASE EVENT DATE: 20190101
